FAERS Safety Report 5396940-X (Version None)
Quarter: 2007Q3

REPORT INFORMATION
  Report Type: 
  Country: None (occurrence: None)
  Receive Date: 20070725
  Receipt Date: 20070711
  Transmission Date: 20080115
  Serious: Yes (Other)
  Sender: FDA-Public Use
  Company Number: PH-ELI_LILLY_AND_COMPANY-PH200707002826

PATIENT
  Age: 14 Year
  Sex: Male

DRUGS (1)
  1. STRATTERA [Suspect]
     Dosage: 40 MG, UNK
     Route: 065

REACTIONS (2)
  - BLOOD PRESSURE INCREASED [None]
  - SINUS ARRHYTHMIA [None]
